FAERS Safety Report 8392555-X (Version None)
Quarter: 2012Q2

REPORT INFORMATION
  Report Type: 
  Country: None (occurrence: None)
  Receive Date: 20120529
  Receipt Date: 20120515
  Transmission Date: 20120825
  Serious: No
  Sender: FDA-Public Use
  Company Number: US-MERCK-1205USA01977

PATIENT
  Age: 7 Year
  Sex: Female
  Weight: 22 kg

DRUGS (1)
  1. SINGULAIR [Suspect]
     Indication: RHINITIS ALLERGIC
     Route: 048
     Dates: start: 20120329, end: 20120417

REACTIONS (6)
  - SUICIDAL IDEATION [None]
  - ANXIETY [None]
  - MOOD ALTERED [None]
  - HALLUCINATION, AUDITORY [None]
  - POOR QUALITY SLEEP [None]
  - ABNORMAL BEHAVIOUR [None]
